FAERS Safety Report 18262980 (Version 1)
Quarter: 2020Q3

REPORT INFORMATION
  Report Type: Spontaneous
  Country: US (occurrence: US)
  Receive Date: 20200914
  Receipt Date: 20200914
  Transmission Date: 20201103
  Serious: Yes (Hospitalization)
  Sender: FDA-Public Use
  Company Number: None

PATIENT
  Sex: Female

DRUGS (10)
  1. FLAXSEED [Concomitant]
     Active Substance: FLAX SEED
     Dates: start: 20200911
  2. GABAPENTIN. [Concomitant]
     Active Substance: GABAPENTIN
     Dates: start: 20190904
  3. VITAMIN B?6 [Concomitant]
     Active Substance: PYRIDOXINE
     Dates: start: 20200911
  4. AMLODIPINE [Concomitant]
     Active Substance: AMLODIPINE BESYLATE
     Dates: start: 20200911
  5. ASPIRIN. [Concomitant]
     Active Substance: ASPIRIN
     Dates: start: 20200911
  6. DULOXETINE. [Concomitant]
     Active Substance: DULOXETINE
     Dates: start: 20200911
  7. METOPROLOL. [Concomitant]
     Active Substance: METOPROLOL
     Dates: start: 20200911
  8. SIMVASTATIN. [Concomitant]
     Active Substance: SIMVASTATIN
     Dates: start: 20200911
  9. VITAMIN D [Concomitant]
     Active Substance: VITAMIN D NOS
     Dates: start: 20200911
  10. DALFAMPRIDINE. [Suspect]
     Active Substance: DALFAMPRIDINE
     Indication: MULTIPLE SCLEROSIS
     Dosage: ?          OTHER FREQUENCY:TWICE DAILY;?
     Route: 048
     Dates: start: 20190424

REACTIONS (3)
  - Arthralgia [None]
  - Vertigo [None]
  - Restless legs syndrome [None]
